FAERS Safety Report 6188510-0 (Version None)
Quarter: 2009Q2

REPORT INFORMATION
  Report Type: 
  Country: None (occurrence: None)
  Receive Date: 20090513
  Receipt Date: 20090210
  Transmission Date: 20091009
  Serious: Yes (Death)
  Sender: FDA-Public Use
  Company Number: NL-ALEXION-A200800449

PATIENT

DRUGS (3)
  1. SOLIRIS [Suspect]
     Indication: ANAEMIA HAEMOLYTIC AUTOIMMUNE
     Dosage: UNK
     Route: 042
     Dates: start: 20080516, end: 20080727
  2. SOLIRIS [Suspect]
     Indication: HAEMOLYSIS
  3. CIPROFLOXACIN [Concomitant]
     Indication: INFECTION PROPHYLAXIS
     Dosage: UNK
     Route: 048
     Dates: start: 20080516, end: 20080530

REACTIONS (1)
  - DEATH [None]
